FAERS Safety Report 8370491-2 (Version None)
Quarter: 2012Q2

REPORT INFORMATION
  Report Type: 
  Country: None (occurrence: None)
  Receive Date: 20120518
  Receipt Date: 20120509
  Transmission Date: 20120825
  Serious: Yes (Hospitalization, Other)
  Sender: FDA-Public Use
  Company Number: US-ASTRAZENECA-2011SE42133

PATIENT
  Age: 59 Year
  Sex: Male
  Weight: 61.2 kg

DRUGS (32)
  1. HUMIRA [Concomitant]
     Dosage: 40MG/0.8 ML, AS DIRECTED ONCE A WEEK
     Route: 058
  2. KETOROLAC TROMETHAMINE [Concomitant]
     Dosage: 30 MG/1 ML, EVERY EIGHT HOURS
     Route: 042
  3. LIDOCAINE [Concomitant]
     Dosage: 1 APPLICATION, EVERY TWO HOURS (NOT SPECIFIED)
     Route: 061
     Dates: start: 20091214
  4. DIPHENHYDRAMINE HCL [Concomitant]
     Dosage: 25 MG/0.5 ML, AS DIRECTED PRN
     Route: 042
     Dates: start: 20091216
  5. NEXIUM IV [Suspect]
     Dosage: 40 MG/ 5 ML, TWICE DAILY
     Route: 042
     Dates: start: 20091216
  6. SODIUM CHLORIDE [Concomitant]
     Dosage: 125 ML/HR OVER 8 HOURS
     Route: 042
  7. TOPROL-XL [Suspect]
     Route: 048
  8. ZESTRIL [Concomitant]
     Indication: ACUTE MYOCARDIAL INFARCTION
     Route: 048
  9. METOPROLOL [Concomitant]
     Dosage: 5 MG/ 5 ML, EVERY FOUR HOURS
     Route: 042
  10. METOPROLOL [Concomitant]
     Route: 048
  11. PRAVACHOL [Concomitant]
     Route: 048
  12. ASPIRIN [Concomitant]
     Indication: CARDIOVASCULAR EVENT PROPHYLAXIS
  13. NITROSTAT [Concomitant]
     Indication: CHEST PAIN
     Route: 060
     Dates: start: 20091214
  14. IBUPROFEN [Concomitant]
     Indication: PROCEDURAL PAIN
     Route: 048
  15. ACETAM/HYDROCODONE [Concomitant]
     Indication: PAIN
     Dosage: 1-2 TABS, EVERY FOUR HOURS PRN
     Route: 048
  16. HYDROMORPHONE HCL [Concomitant]
     Indication: PROCEDURAL PAIN
     Dosage: 30 MG/ 30 ML, AS DIRECTED
     Route: 042
     Dates: start: 20091216
  17. DOXEPIN [Concomitant]
     Dosage: PRN
     Route: 048
  18. PERCOCET [Concomitant]
     Dosage: 5-325 MG. EVERY 6 HOURS AS NEEDED
     Route: 048
  19. ZOLOFT [Concomitant]
  20. FLONASE [Concomitant]
     Dosage: 50 MCG
  21. ONDANSETRON [Concomitant]
     Indication: VOMITING
     Dosage: 2MG/ML, 4-8 MG, EVERY EIGHT HOURS, PRN
     Route: 042
  22. ACETAMINOPHEN [Concomitant]
     Route: 048
     Dates: start: 20091216
  23. PRAVACHOL [Concomitant]
     Indication: CARDIOVASCULAR EVENT PROPHYLAXIS
  24. CALCIUM CARBONATE-VITAMIN D2 [Concomitant]
     Dosage: 600-200 MG-UNIT
  25. NEXIUM [Suspect]
     Route: 048
     Dates: start: 20091214
  26. DOCUSATE SODIUM [Concomitant]
     Indication: CONSTIPATION
     Route: 048
  27. PCA KEY [Concomitant]
     Dosage: 1 EA, AS DIRECTED
     Dates: start: 20091216
  28. NEXIUM [Suspect]
     Route: 048
  29. ULTRAM [Concomitant]
     Route: 048
  30. HUMIRA [Concomitant]
     Dosage: 40MG/0.8 ML, EVERY TWO WEEKS
     Route: 058
  31. ASPIRIN [Concomitant]
     Route: 048
  32. ONDANSETRON [Concomitant]
     Indication: NAUSEA
     Dosage: 2MG/ML, 4-8 MG, EVERY EIGHT HOURS, PRN
     Route: 042

REACTIONS (7)
  - HYPERHIDROSIS [None]
  - UVEITIS [None]
  - CONSTIPATION [None]
  - PROSTATE CANCER [None]
  - ABDOMINAL PAIN [None]
  - ACUTE MYOCARDIAL INFARCTION [None]
  - TINNITUS [None]
